FAERS Safety Report 6380672-5 (Version None)
Quarter: 2009Q3

REPORT INFORMATION
  Report Type: 
  Country: None (occurrence: None)
  Receive Date: 20090929
  Receipt Date: 20090922
  Transmission Date: 20100115
  Serious: Yes (Other)
  Sender: FDA-Public Use
  Company Number: US-CUBIST-2009S1000404

PATIENT
  Age: 6 Year
  Sex: Male
  Weight: 22.7 kg

DRUGS (17)
  1. CUBICIN [Suspect]
     Indication: ENTEROCOCCAL INFECTION
     Dates: start: 20090828
  2. AMPHOTERICIN B [Concomitant]
     Indication: DRUG USE FOR UNKNOWN INDICATION
  3. CEFEPIME [Concomitant]
     Indication: DRUG USE FOR UNKNOWN INDICATION
  4. CHLOROTHIAZIDE [Concomitant]
     Indication: DRUG USE FOR UNKNOWN INDICATION
  5. DOBUTAMINE HCL [Concomitant]
     Indication: DRUG USE FOR UNKNOWN INDICATION
  6. DOPAMINE HCL [Concomitant]
     Indication: DRUG USE FOR UNKNOWN INDICATION
  7. FLAGYL [Concomitant]
     Indication: DRUG USE FOR UNKNOWN INDICATION
  8. GENTAMICIN [Concomitant]
     Indication: DRUG USE FOR UNKNOWN INDICATION
  9. POTASSIUM CHLORIDE [Concomitant]
     Indication: DRUG USE FOR UNKNOWN INDICATION
  10. FUROSEMIDE [Concomitant]
  11. MEROPENEM [Concomitant]
     Indication: DRUG USE FOR UNKNOWN INDICATION
  12. MILRINONE [Concomitant]
     Indication: DRUG USE FOR UNKNOWN INDICATION
  13. RIFAMPIN [Concomitant]
     Indication: DRUG USE FOR UNKNOWN INDICATION
  14. SYNTHROID [Concomitant]
     Indication: DRUG USE FOR UNKNOWN INDICATION
  15. CYTARABINE [Concomitant]
     Indication: ACUTE MYELOID LEUKAEMIA
  16. IDARUBICIN HCL [Suspect]
     Indication: ACUTE MYELOID LEUKAEMIA
  17. VELCADE [Suspect]
     Indication: ACUTE MYELOID LEUKAEMIA

REACTIONS (4)
  - COR PULMONALE [None]
  - LEFT VENTRICULAR DYSFUNCTION [None]
  - MYOCARDITIS [None]
  - RIGHT VENTRICULAR DYSFUNCTION [None]
